FAERS Safety Report 4274437-8 (Version None)
Quarter: 2004Q1

REPORT INFORMATION
  Report Type: 
  Country: None (occurrence: None)
  Receive Date: 20040120
  Receipt Date: 20030604
  Transmission Date: 20041129
  Serious: Yes (Other)
  Sender: FDA-Public Use
  Company Number: US-BRISTOL-MYERS SQUIBB COMPANY-12293114

PATIENT
  Age: 29 Year
  Sex: Male
  Weight: 66 kg

DRUGS (4)
  1. IFEX [Suspect]
     Indication: HODGKIN'S DISEASE RECURRENT
     Dosage: 2 G/M2
     Route: 042
     Dates: start: 20030602, end: 20030603
  2. MESNA [Concomitant]
  3. CARBOPLATIN [Concomitant]
  4. VEPESID [Concomitant]

REACTIONS (1)
  - HAEMATURIA [None]
